FAERS Safety Report 22232319 (Version 1)
Quarter: 2023Q2

REPORT INFORMATION
  Report Type: Spontaneous
  Country: US (occurrence: None)
  Receive Date: 20230420
  Receipt Date: 20230420
  Transmission Date: 20230721
  Serious: No
  Sender: FDA-Public Use
  Company Number: US-ROCHE-3086573

PATIENT
  Sex: Male

DRUGS (4)
  1. ESBRIET [Suspect]
     Active Substance: PIRFENIDONE
     Indication: Idiopathic pulmonary fibrosis
     Dosage: TAKE 1 TABLET 3 TIMES DAILY FORM A WEEK, THEN 2 TABLETS 3 TIMES DAILY FOR ANOTHER WEEK AND 3 TABLETS
     Route: 048
     Dates: start: 20220406
  2. AZITHROMYCIN [Concomitant]
     Active Substance: AZITHROMYCIN
  3. INDOMETHACIN [Concomitant]
     Active Substance: INDOMETHACIN
  4. OMEPRAZOLE [Concomitant]
     Active Substance: OMEPRAZOLE

REACTIONS (3)
  - Musculoskeletal stiffness [Not Recovered/Not Resolved]
  - Pain [Not Recovered/Not Resolved]
  - Crepitations [Not Recovered/Not Resolved]
